FAERS Safety Report 9228501 (Version 1)
Quarter: 2013Q2

REPORT INFORMATION
  Report Type: Spontaneous
  Country: GB (occurrence: GB)
  Receive Date: 20130412
  Receipt Date: 20130412
  Transmission Date: 20140414
  Serious: Yes (Other)
  Sender: FDA-Public Use
  Company Number: GB-GLAXOSMITHKLINE-B0880640A

PATIENT
  Sex: Male

DRUGS (1)
  1. SEROXAT [Suspect]
     Indication: DEPRESSION
     Route: 048

REACTIONS (24)
  - Drug dependence [Unknown]
  - Aggression [Unknown]
  - Restlessness [Unknown]
  - Fatigue [Unknown]
  - Sexual dysfunction [Unknown]
  - Homicidal ideation [Unknown]
  - Confusional state [Unknown]
  - Mania [Unknown]
  - Disturbance in attention [Unknown]
  - Anxiety [Unknown]
  - Panic attack [Unknown]
  - Tinnitus [Unknown]
  - Abnormal dreams [Unknown]
  - Violence-related symptom [Unknown]
  - Personality change [Unknown]
  - Quality of life decreased [Unknown]
  - Muscle twitching [Unknown]
  - Anger [Unknown]
  - Antisocial behaviour [Unknown]
  - Social avoidant behaviour [Unknown]
  - Drug ineffective [Unknown]
  - Muscle spasms [Unknown]
  - Muscle spasms [Unknown]
  - Drug withdrawal syndrome [Unknown]
